FAERS Safety Report 7932092-7 (Version None)
Quarter: 2011Q4

REPORT INFORMATION
  Report Type: 
  Country: None (occurrence: None)
  Receive Date: 20111121
  Receipt Date: 20110822
  Transmission Date: 20120403
  Serious: No
  Sender: FDA-Public Use
  Company Number: US-BAYER-2011-080157

PATIENT

DRUGS (2)
  1. CELEBREX [Interacting]
     Dosage: 1 DF, UNK
  2. ALEVE (CAPLET) [Suspect]
     Dosage: 6 DF, UNK

REACTIONS (1)
  - NO ADVERSE EVENT [None]
